FAERS Safety Report 7912468-4 (Version None)
Quarter: 2011Q4

REPORT INFORMATION
  Report Type: 
  Country: None (occurrence: None)
  Receive Date: 20111114
  Receipt Date: 20111109
  Transmission Date: 20120403
  Serious: No
  Sender: FDA-Public Use
  Company Number: US-PFIZER INC-2011165407

PATIENT
  Sex: Female
  Weight: 90.703 kg

DRUGS (1)
  1. IBUPROFEN (ADVIL) [Suspect]
     Dosage: 200 MG, AS NEEDED
     Dates: end: 20110720

REACTIONS (1)
  - HYPOAESTHESIA ORAL [None]
